FAERS Safety Report 19249643 (Version 3)
Quarter: 2021Q3

REPORT INFORMATION
  Report Type: Spontaneous
  Country: US (occurrence: US)
  Receive Date: 20210513
  Receipt Date: 20210707
  Transmission Date: 20211014
  Serious: Yes (Other)
  Sender: FDA-Public Use
  Company Number: US-ROCHE-2813937

PATIENT
  Age: 61 Year
  Sex: Female

DRUGS (3)
  1. GAVRETO [Suspect]
     Active Substance: PRALSETINIB
     Indication: BRAIN NEOPLASM MALIGNANT
     Dosage: TAKE 2 CAPSULE (400 MG TOTAL) BY MOUTH DAILY
     Route: 048
     Dates: start: 20210308
  2. GAVRETO [Suspect]
     Active Substance: PRALSETINIB
     Indication: LUNG NEOPLASM MALIGNANT
     Dosage: TAKE 2 CAPSULE (200 MG TOTAL) BY MOUTH DAILY
     Route: 048
     Dates: start: 20210315
  3. GAVRETO [Suspect]
     Active Substance: PRALSETINIB
     Dosage: TAKE 3 CAPSULE (300 MG TOTAL) BY MOUTH DAILY
     Route: 048
     Dates: start: 20210315

REACTIONS (4)
  - Cognitive disorder [Not Recovered/Not Resolved]
  - Cataract [Not Recovered/Not Resolved]
  - Aphasia [Not Recovered/Not Resolved]
  - Brain oedema [Not Recovered/Not Resolved]

NARRATIVE: CASE EVENT DATE: 20210308
